FAERS Safety Report 10233284 (Version 1)
Quarter: 2014Q2

REPORT INFORMATION
  Report Type: Spontaneous
  Country: US (occurrence: None)
  Receive Date: 20140506
  Receipt Date: 20140506
  Transmission Date: 20141212
  Serious: Yes (Hospitalization)
  Sender: FDA-Public Use
  Company Number: 1242994

PATIENT
  Age: 26 Year
  Sex: Female

DRUGS (3)
  1. AVASTATIN (BEVACIZUMAB) [Suspect]
     Indication: ANAPLASTIC ASTROCYTOMA
     Route: 042
     Dates: start: 201208
  2. DECADRON (DEXAMETHASONE) [Suspect]
     Indication: PRODUCT USED FOR UNKNOWN INDICATION
  3. TEMODAR TEMOZOLOMIDE) [Concomitant]

REACTIONS (6)
  - Sepsis [None]
  - Lung infection [None]
  - Cushing^s syndrome [None]
  - Headache [None]
  - Impaired healing [None]
  - Wound infection [None]
